FAERS Safety Report 17424185 (Version 1)
Quarter: 2020Q1

REPORT INFORMATION
  Report Type: Spontaneous
  Country: BR (occurrence: BR)
  Receive Date: 20200217
  Receipt Date: 20200217
  Transmission Date: 20200409
  Serious: Yes (Death, Other)
  Sender: FDA-Public Use
  Company Number: BR-ROCHE-2544447

PATIENT
  Age: 78 Year
  Sex: Female

DRUGS (1)
  1. XELODA [Suspect]
     Active Substance: CAPECITABINE
     Indication: RECTAL ADENOCARCINOMA
     Dosage: 3 TABLETS IN THE MORNING AND 2 TABLETS AT NIGHT, FROM MONDAY TO FRIDAY
     Route: 065

REACTIONS (7)
  - Death [Fatal]
  - Leukopenia [Unknown]
  - Pneumonia [Unknown]
  - Renal failure [Unknown]
  - Diarrhoea [Not Recovered/Not Resolved]
  - Sepsis [Unknown]
  - Respiratory failure [Unknown]
